FAERS Safety Report 5381355-0 (Version None)
Quarter: 2007Q3

REPORT INFORMATION
  Report Type: 
  Country: None (occurrence: None)
  Receive Date: 20070709
  Receipt Date: 20070625
  Transmission Date: 20080115
  Serious: Yes (Death, Hospitalization)
  Sender: FDA-Public Use
  Company Number: HR-ELI_LILLY_AND_COMPANY-HR200706003759

PATIENT
  Age: 44 Year
  Sex: Male
  Weight: 75 kg

DRUGS (9)
  1. OLANZAPINE [Suspect]
     Indication: SCHIZOPHRENIA
     Dosage: 30 MG, DAILY (1/D)
     Route: 048
  2. PAROXETINE [Concomitant]
     Indication: SCHIZOPHRENIA
     Dosage: 20 MG, DAILY (1/D)
     Route: 048
  3. FLUPHENAZINE [Concomitant]
     Indication: SCHIZOPHRENIA
     Dosage: 25 MG, UNK
     Route: 030
  4. FLUPHENAZINE [Concomitant]
     Dosage: 40 MG, DAILY (1/D)
     Route: 048
  5. HALOPERIDOL [Concomitant]
     Dosage: 12 MG, DAILY (1/D)
     Route: 048
  6. BROMAZEPAM [Concomitant]
     Indication: SCHIZOPHRENIA
     Dosage: 36 MG, DAILY (1/D)
     Route: 048
  7. ALPRAZOLAM [Concomitant]
     Dosage: 6 MG, DAILY (1/D)
     Route: 048
  8. DIAZEPAM [Concomitant]
     Indication: SCHIZOPHRENIA
     Dosage: 30 MG, DAILY (1/D)
  9. BIPERIDEN HYDROCHLORIDE TAB [Concomitant]
     Dosage: 6 MG, DAILY (1/D)
     Route: 048

REACTIONS (8)
  - BRAIN OEDEMA [None]
  - CARDIAC ARREST [None]
  - COMA [None]
  - HYPERGLYCAEMIA [None]
  - HYPONATRAEMIA [None]
  - HYPOTENSION [None]
  - INAPPROPRIATE ANTIDIURETIC HORMONE SECRETION [None]
  - PANCREATITIS HAEMORRHAGIC [None]
